FAERS Safety Report 8951420 (Version 1)
Quarter: 2012Q4

REPORT INFORMATION
  Report Type: Spontaneous
  Country: ZA (occurrence: None)
  Receive Date: 20121129
  Receipt Date: 20121129
  Transmission Date: 20130627
  Serious: Yes (Hospitalization)
  Sender: FDA-Public Use
  Company Number: B0846922A

PATIENT
  Age: 34 Year
  Sex: Male

DRUGS (3)
  1. EPIVIR [Suspect]
     Indication: HIV INFECTION
     Dates: start: 200605
  2. EFAVIRENZ [Suspect]
     Indication: HIV INFECTION
     Dosage: 600 mg at night, unknown
     Dates: start: 200605
  3. STAVUDINE [Suspect]
     Indication: HIV INFECTION

REACTIONS (11)
  - Pyrexia [None]
  - Diarrhoea [None]
  - Hepatomegaly [None]
  - Respiratory distress [None]
  - Productive cough [None]
  - Dyspnoea exertional [None]
  - Weight decreased [None]
  - Hilar lymphadenopathy [None]
  - Tuberculosis [None]
  - Immune reconstitution inflammatory syndrome [None]
  - Condition aggravated [None]
